FAERS Safety Report 6981734-1 (Version None)
Quarter: 2010Q3

REPORT INFORMATION
  Report Type: 
  Country: None (occurrence: None)
  Receive Date: 20100914
  Receipt Date: 20091022
  Transmission Date: 20110219
  Serious: No
  Sender: FDA-Public Use
  Company Number: US-PFIZER INC-2009262721

PATIENT
  Age: 52 Year
  Sex: Female
  Weight: 93.9 kg

DRUGS (4)
  1. LYRICA [Suspect]
     Dosage: 200 MG, 2X/DAY
     Route: 048
     Dates: start: 20080101, end: 20090817
  2. SOMA [Concomitant]
     Indication: PAIN
     Dosage: 700 MG, UNK
     Route: 048
  3. MORPHINE SULFATE [Concomitant]
     Indication: PAIN
     Dosage: 60 MG, 2X/DAY
     Route: 048
  4. XANAX [Concomitant]
     Indication: ANXIETY
     Dosage: 1 MG, 3X/DAY
     Route: 048

REACTIONS (2)
  - FATIGUE [None]
  - WEIGHT INCREASED [None]
